FAERS Safety Report 7018342-2 (Version None)
Quarter: 2010Q3

REPORT INFORMATION
  Report Type: 
  Country: None (occurrence: None)
  Receive Date: 20100924
  Receipt Date: 20100908
  Transmission Date: 20110219
  Serious: Yes (Death, Hospitalization, Other)
  Sender: FDA-Public Use
  Company Number: 2010002398

PATIENT
  Age: 38 Year
  Sex: Female

DRUGS (2)
  1. ERLOTINIB HYDROCHLORIDE [Suspect]
     Indication: BREAST CANCER
     Dosage: 150 MG, QD, ORAL
     Route: 048
     Dates: start: 20100502, end: 20100523
  2. BENDAMUSTINE (BENDAMUSTINE) [Suspect]
     Indication: BREAST CANCER
     Dosage: 228 MG, 228 MG / 120 MG/M^2, INTRAVENOUS
     Route: 042
     Dates: start: 20100503, end: 20100504

REACTIONS (15)
  - ANAEMIA [None]
  - BREAST DISCHARGE [None]
  - CHEST DISCOMFORT [None]
  - DECREASED APPETITE [None]
  - DIARRHOEA [None]
  - FATIGUE [None]
  - HYPOTENSION [None]
  - IRON DEFICIENCY [None]
  - NIPPLE EXUDATE BLOODY [None]
  - OPPORTUNISTIC INFECTION [None]
  - PYREXIA [None]
  - RENAL FAILURE ACUTE [None]
  - SEPSIS [None]
  - STAPHYLOCOCCUS TEST POSITIVE [None]
  - THERAPEUTIC AGENT TOXICITY [None]
